FAERS Safety Report 7989301-8 (Version None)
Quarter: 2011Q4

REPORT INFORMATION
  Report Type: 
  Country: None (occurrence: None)
  Receive Date: 20111219
  Receipt Date: 20111214
  Transmission Date: 20120403
  Serious: No
  Sender: FDA-Public Use
  Company Number: US-BAYER-2011-121093

PATIENT
  Age: 68 Year
  Sex: Male
  Weight: 76 kg

DRUGS (4)
  1. ALEVE (CAPLET) [Suspect]
     Indication: BACK PAIN
     Dosage: 2 DF, UNK
     Route: 048
     Dates: start: 20111201, end: 20111201
  2. CENTRUM [Concomitant]
  3. HIGH CHOLESTEROL MEDICATION [Concomitant]
  4. ASPIRIN [Suspect]

REACTIONS (2)
  - BACK PAIN [None]
  - ABDOMINAL DISCOMFORT [None]
